FAERS Safety Report 5671117-9 (Version None)
Quarter: 2008Q1

REPORT INFORMATION
  Report Type: 
  Country: None (occurrence: None)
  Receive Date: 20080313
  Receipt Date: 20080226
  Transmission Date: 20080703
  Serious: Yes (Death, Hospitalization)
  Sender: FDA-Public Use
  Company Number: TRP_01080_2008

PATIENT
  Sex: Male
  Weight: 80.7403 kg

DRUGS (8)
  1. INFERGEN [Suspect]
     Indication: HEPATITIS C
     Dosage: (15 ?G QD  SUBCUTANEOUS)
     Route: 058
     Dates: start: 20071018
  2. RIBAVIRIN [Suspect]
     Indication: HEPATITIS C
     Dosage: (1000 MG [600 MG IN THE AM; 400 MG IN THE PM]) ORAL
     Route: 048
  3. ENULOSE [Concomitant]
  4. LASIX [Concomitant]
  5. VITAMIN CAP [Concomitant]
  6. ASCORBIC ACID [Concomitant]
  7. VITAMIN E [Concomitant]
  8. SPIRONOLACTONE [Concomitant]

REACTIONS (10)
  - ASTHENIA [None]
  - DIZZINESS [None]
  - ENCEPHALITIS [None]
  - HEADACHE [None]
  - HYPERSOMNIA [None]
  - INFLUENZA LIKE ILLNESS [None]
  - MENINGITIS [None]
  - NAUSEA [None]
  - PAIN [None]
  - PYREXIA [None]
